FAERS Safety Report 16915065 (Version 1)
Quarter: 2019Q4

REPORT INFORMATION
  Report Type: Spontaneous
  Country: US (occurrence: US)
  Receive Date: 20191014
  Receipt Date: 20191014
  Transmission Date: 20200122
  Serious: Yes (Death)
  Sender: FDA-Public Use
  Company Number: US-GILEAD-2019-0432772

PATIENT
  Age: 90 Year
  Sex: Male

DRUGS (1)
  1. YESCARTA [Suspect]
     Active Substance: AXICABTAGENE CILOLEUCEL
     Indication: LYMPHOMA
     Dosage: UNK
     Route: 042
     Dates: start: 2019, end: 2019

REACTIONS (1)
  - Neurotoxicity [Fatal]

NARRATIVE: CASE EVENT DATE: 2019
